FAERS Safety Report 5611083-5 (Version None)
Quarter: 2008Q1

REPORT INFORMATION
  Report Type: 
  Country: None (occurrence: None)
  Receive Date: 20080201
  Receipt Date: 20080125
  Transmission Date: 20080703
  Serious: Yes (Other)
  Sender: FDA-Public Use
  Company Number: HQWYE295321JUL04

PATIENT
  Sex: Female
  Weight: 79.45 kg

DRUGS (4)
  1. PREMARIN [Suspect]
     Indication: HORMONE REPLACEMENT THERAPY
     Dosage: UNKNOWN
     Dates: start: 19880101, end: 19990421
  2. PREMPRO [Suspect]
  3. PROVERA [Suspect]
  4. PROGESTERONE [Suspect]
     Indication: HORMONE REPLACEMENT THERAPY
     Dosage: UNKNOWN
     Dates: start: 19880101, end: 19990421

REACTIONS (1)
  - BREAST CANCER METASTATIC [None]
